FAERS Safety Report 12272450 (Version 1)
Quarter: 2016Q2

REPORT INFORMATION
  Report Type: Report from Study
  Country: US (occurrence: US)
  Receive Date: 20160415
  Receipt Date: 20160415
  Transmission Date: 20160815
  Serious: Yes (Other)
  Sender: FDA-Public Use
  Company Number: US-BAXALTA-2016BLT002035

PATIENT
  Age: 19 Year
  Sex: Male

DRUGS (1)
  1. ONCASPAR [Suspect]
     Active Substance: PEGASPARGASE
     Indication: ACUTE LYMPHOCYTIC LEUKAEMIA
     Dosage: FIRST DOSE
     Route: 042
     Dates: start: 20150604, end: 20150604

REACTIONS (8)
  - Enterococcal infection [Recovered/Resolved]
  - Muscle haemorrhage [Recovered/Resolved]
  - Pancreatitis necrotising [Recovered/Resolved]
  - Shock haemorrhagic [Recovered/Resolved]
  - Haemorrhage intracranial [Recovered/Resolved]
  - Seizure [Recovered/Resolved]
  - Pancreatic pseudocyst [Recovered/Resolved]
  - Intracranial venous sinus thrombosis [Recovered/Resolved]

NARRATIVE: CASE EVENT DATE: 20150620
